FAERS Safety Report 4548590-2 (Version None)
Quarter: 2005Q1

REPORT INFORMATION
  Report Type: 
  Country: None (occurrence: None)
  Receive Date: 20050105
  Receipt Date: 20050105
  Transmission Date: 20050727
  Serious: Yes (Life-Threatening, Hospitalization)
  Sender: FDA-Public Use
  Company Number: None

PATIENT

DRUGS (2)
  1. VIOXX [Suspect]
     Indication: PAIN
     Dosage: 1 / DAY
     Dates: start: 20000623
  2. VIOXX [Suspect]
     Indication: PAIN
     Dosage: 1 / DAY
     Dates: start: 20040723

REACTIONS (2)
  - IMPAIRED WORK ABILITY [None]
  - MYOCARDIAL INFARCTION [None]
